FAERS Safety Report 4874156-0 (Version None)
Quarter: 2006Q1

REPORT INFORMATION
  Report Type: 
  Country: None (occurrence: None)
  Receive Date: 20060106
  Receipt Date: 20051212
  Transmission Date: 20060701
  Serious: Yes (Hospitalization)
  Sender: FDA-Public Use
  Company Number: JP-JPN-A20053047

PATIENT
  Age: 82 Year
  Sex: Female
  Weight: 46 kg

DRUGS (4)
  1. PAXIL [Suspect]
     Indication: PANIC DISORDER
     Dosage: 15MG TWICE PER DAY
     Route: 048
     Dates: start: 20030731, end: 20051125
  2. PLETAL [Suspect]
     Indication: CEREBRAL INFARCTION
     Dosage: 100MG TWICE PER DAY
     Route: 048
     Dates: start: 20051121, end: 20051125
  3. DEPAS [Concomitant]
     Indication: PANIC DISORDER
     Dosage: 1MG PER DAY
     Route: 048
     Dates: start: 20030731, end: 20051125
  4. TOWARAT L [Concomitant]
     Indication: HYPERTENSION
     Dosage: 20MG PER DAY
     Route: 048
     Dates: start: 20030101, end: 20051125

REACTIONS (13)
  - BLOOD CHLORIDE INCREASED [None]
  - BLOOD CREATINE PHOSPHOKINASE INCREASED [None]
  - BLOOD CREATININE INCREASED [None]
  - BLOOD GLUCOSE INCREASED [None]
  - BLOOD SODIUM INCREASED [None]
  - BLOOD UREA INCREASED [None]
  - DIABETIC KETOACIDOSIS [None]
  - DIZZINESS [None]
  - INFECTION [None]
  - NEUROLEPTIC MALIGNANT SYNDROME [None]
  - PYREXIA [None]
  - TREMOR [None]
  - WHITE BLOOD CELL COUNT INCREASED [None]
